FAERS Safety Report 4911772-1 (Version None)
Quarter: 2006Q1

REPORT INFORMATION
  Report Type: 
  Country: None (occurrence: None)
  Receive Date: 20060213
  Receipt Date: 20060213
  Transmission Date: 20060701
  Serious: Yes (Life-Threatening, Hospitalization)
  Sender: FDA-Public Use
  Company Number: None

PATIENT
  Sex: Male
  Weight: 6.2 kg

DRUGS (3)
  1. SYANGIS 100 MG                  MEDIMUNE [Suspect]
     Indication: PROPHYLAXIS
     Dosage: 75MG  ONCE   IM
     Route: 030
     Dates: start: 20060109, end: 20060109
  2. SYANGIS 100 MG                  MEDIMUNE [Suspect]
     Indication: RESPIRATORY SYNCYTIAL VIRUS INFECTION
     Dosage: 75MG  ONCE   IM
     Route: 030
     Dates: start: 20060109, end: 20060109
  3. SYNAGIS    100MG          MEDIMUNE [Suspect]
     Indication: PREMATURE BABY
     Dosage: 92MG  ONCE  IM
     Route: 030
     Dates: start: 20060207, end: 20060207

REACTIONS (4)
  - COUGH [None]
  - DYSPNOEA [None]
  - OXYGEN SATURATION DECREASED [None]
  - VOMITING [None]
